FAERS Safety Report 5197784-4 (Version None)
Quarter: 2006Q4

REPORT INFORMATION
  Report Type: 
  Country: None (occurrence: None)
  Receive Date: 20061228
  Receipt Date: 20061211
  Transmission Date: 20070319
  Serious: Yes (Hospitalization)
  Sender: FDA-Public Use
  Company Number: 2006BI018784

PATIENT
  Age: 28 Year
  Sex: Female

DRUGS (2)
  1. AVONEX [Suspect]
     Indication: MULTIPLE SCLEROSIS
     Dosage: 30 UG; QW; IM
     Route: 030
     Dates: start: 20061007
  2. PREDNISONE TAB [Concomitant]

REACTIONS (6)
  - ALOPECIA [None]
  - CONDITION AGGRAVATED [None]
  - COORDINATION ABNORMAL [None]
  - DYSPHONIA [None]
  - MULTIPLE SCLEROSIS [None]
  - VISUAL DISTURBANCE [None]
